FAERS Safety Report 8790354 (Version 7)
Quarter: 2013Q2

REPORT INFORMATION
  Report Type: Spontaneous
  Country: US (occurrence: US)
  Receive Date: 20120917
  Receipt Date: 20130503
  Transmission Date: 20140414
  Serious: Yes (Other)
  Sender: FDA-Public Use
  Company Number: US-JNJFOC-20120902234

PATIENT
  Age: 54 Year
  Sex: Male
  Weight: 78.93 kg

DRUGS (39)
  1. INTELENCE [Suspect]
     Indication: HIV INFECTION
     Dosage: 100MG 2 PILLS 2 PER DAY
     Route: 048
     Dates: start: 20080320
  2. PREZISTA [Suspect]
     Indication: HIV INFECTION
     Route: 048
     Dates: start: 20080320
  3. ISENTRESS [Suspect]
     Indication: HIV INFECTION
     Route: 048
     Dates: start: 20080320
  4. FAMCICLOVIR [Suspect]
     Indication: PRODUCT USED FOR UNKNOWN INDICATION
     Route: 065
     Dates: end: 201001
  5. VIREAD [Suspect]
     Indication: HIV INFECTION
     Dosage: 10 YEARS
     Route: 048
     Dates: start: 200202, end: 20120820
  6. VALTREX [Suspect]
     Indication: HERPES ZOSTER
     Route: 065
     Dates: start: 20100103
  7. NORVIR [Suspect]
     Indication: HIV INFECTION
     Dosage: APPROXIMATELY 10 YEARS
     Route: 048
     Dates: start: 2002
  8. ZIAGEN [Suspect]
     Indication: HIV INFECTION
     Route: 048
     Dates: start: 20080320
  9. LIPITOR [Suspect]
     Indication: BLOOD CHOLESTEROL INCREASED
     Dosage: DISCONTINUED IN AUG-2012/SEP-2012
     Route: 048
     Dates: start: 201112, end: 20120816
  10. TRICOR [Suspect]
     Indication: PRODUCT USED FOR UNKNOWN INDICATION
     Dosage: 3-4 TIMES A WEEK
     Route: 065
     Dates: end: 201203
  11. UBIDECARENONE [Concomitant]
     Route: 065
  12. LEVOCARNITINE [Concomitant]
     Indication: BLOOD CHOLESTEROL INCREASED
     Dosage: 1-3 PER DAY
     Route: 065
     Dates: start: 201205
  13. LEVOCARNITINE [Concomitant]
     Indication: BLOOD CHOLESTEROL INCREASED
     Dosage: 300MG 6 PER DAY
     Route: 065
     Dates: start: 201202
  14. ACETYLCARNITINE [Concomitant]
     Indication: PRODUCT USED FOR UNKNOWN INDICATION
     Route: 048
     Dates: end: 201205
  15. ACTOS [Concomitant]
     Indication: DIABETES MELLITUS
     Route: 065
     Dates: start: 2004
  16. FISH OIL [Concomitant]
     Dosage: 2000/DAY
     Route: 065
     Dates: start: 20110525
  17. N-ACETYLCYSTEINE [Concomitant]
     Dosage: 4-6 THROUGHOUT WEEK
     Route: 065
  18. VITAMINE E [Concomitant]
     Route: 065
  19. VITAMINE E [Concomitant]
     Route: 065
     Dates: start: 20120820
  20. SELENIUM [Concomitant]
     Dosage: 4-6 THROUGHOUT WEEK
     Route: 065
  21. MILK THISTLE [Concomitant]
     Dosage: 1 TSP (NOT CONSISTENT)
     Route: 065
  22. ALFALFA [Concomitant]
     Dosage: 2 TO 3, USUALLY ON WEEKENDS
     Route: 065
  23. VITAMIN B3 [Concomitant]
     Route: 065
  24. VITAMIN D2 [Concomitant]
     Route: 065
     Dates: start: 20120809
  25. VITAMIN D2 [Concomitant]
     Route: 065
     Dates: end: 20120809
  26. ALPHA LIPOIC ACID [Concomitant]
     Route: 065
  27. ALPHA LIPOIC ACID [Concomitant]
     Route: 065
  28. COQ10 [Concomitant]
     Route: 065
     Dates: start: 20120915
  29. COQ10 [Concomitant]
     Route: 065
     Dates: end: 20120915
  30. CHOLINE BITARTRATE [Concomitant]
     Route: 065
     Dates: start: 20120815
  31. VITAMIN B12 [Concomitant]
     Dosage: 3-4 TIMES A WEEK
     Route: 065
     Dates: end: 2012
  32. VITAMIN B1 [Concomitant]
     Dosage: 3-4 TIMES A WEEK
     Route: 065
     Dates: end: 201208
  33. GLUTAMINE [Concomitant]
     Indication: PRODUCT USED FOR UNKNOWN INDICATION
     Route: 065
  34. VITAMIN B2 [Concomitant]
     Indication: PRODUCT USED FOR UNKNOWN INDICATION
     Route: 065
  35. VITAMIN B6 [Concomitant]
     Indication: PRODUCT USED FOR UNKNOWN INDICATION
     Route: 065
  36. ABACAVIR [Concomitant]
     Indication: HIV INFECTION
     Route: 065
     Dates: start: 20080320
  37. VALACYCLOVIR [Concomitant]
     Indication: HERPES VIRUS INFECTION
     Route: 065
     Dates: start: 20100103
  38. LEVOGLUTAMIDE [Concomitant]
     Route: 065
  39. SILYMARIN [Concomitant]
     Route: 065

REACTIONS (15)
  - Vitamin B6 deficiency [Unknown]
  - Mitochondrial toxicity [Unknown]
  - Nervous system disorder [Unknown]
  - Blood cholesterol increased [Unknown]
  - Neuropathy peripheral [Not Recovered/Not Resolved]
  - Blood glucose increased [Recovered/Resolved]
  - Blood magnesium increased [Recovering/Resolving]
  - Mitochondrial DNA depletion [Unknown]
  - Rash pruritic [Not Recovered/Not Resolved]
  - Mobility decreased [Unknown]
  - Eye pain [Recovering/Resolving]
  - Blindness [Unknown]
  - Red blood cell count decreased [Unknown]
  - Adverse event [Unknown]
  - Diarrhoea [Unknown]
